FAERS Safety Report 13305785 (Version 1)
Quarter: 2017Q1

REPORT INFORMATION
  Report Type: Spontaneous
  Country: US (occurrence: US)
  Receive Date: 20170308
  Receipt Date: 20170308
  Transmission Date: 20170428
  Serious: Yes (Life-Threatening, Hospitalization)
  Sender: FDA-Public Use
  Company Number: None

PATIENT
  Age: 48 Year
  Sex: Male
  Weight: 59.5 kg

DRUGS (1)
  1. AMPICILLIN/SULBACTAM [Suspect]
     Active Substance: AMPICILLIN SODIUM\SULBACTAM SODIUM
     Indication: PROPHYLAXIS
     Dosage: 2/1 GM ONCE IV
     Route: 042
     Dates: start: 20170227, end: 20170227

REACTIONS (4)
  - Angioedema [None]
  - Rash [None]
  - Respiratory tract oedema [None]
  - Anaphylactic reaction [None]

NARRATIVE: CASE EVENT DATE: 20170227
